FAERS Safety Report 9996436 (Version 1)
Quarter: 2014Q1

REPORT INFORMATION
  Report Type: Spontaneous
  Country: US (occurrence: None)
  Receive Date: 20140304
  Receipt Date: 20140304
  Transmission Date: 20141002
  Serious: Yes (Hospitalization, Other)
  Sender: FDA-Public Use
  Company Number: RB-59601-2013

PATIENT
  Sex: Male

DRUGS (3)
  1. SUBOXONE [Suspect]
     Indication: DRUG DEPENDENCE
     Dosage: (SUBOXONE FILM;
     Route: 064
     Dates: start: 201205, end: 201207
  2. BUPRENORPHINE (NONE) [Suspect]
     Indication: DRUG DEPENDENCE
     Route: 064
     Dates: start: 201207, end: 201203
  3. NICOTINE (NONE) [Suspect]
     Indication: DRUG DEPENDENCE
     Dosage: ( DOSING: 5-10 CIGARETTES DAILY TRANSPLACENTAL)
     Route: 064
     Dates: start: 201205, end: 201303

REACTIONS (1)
  - Drug withdrawal syndrome neonatal [None]
